FAERS Safety Report 23839064 (Version 4)
Quarter: 2025Q3

REPORT INFORMATION
  Report Type: Spontaneous
  Country: US (occurrence: US)
  Receive Date: 20240509
  Receipt Date: 20250827
  Transmission Date: 20251021
  Serious: No
  Sender: ELI LILLY AND COMPANY
  Company Number: US-ELI_LILLY_AND_COMPANY-US202405004096

PATIENT
  Age: 31 Year
  Sex: Male

DRUGS (6)
  1. OMVOH [Suspect]
     Active Substance: MIRIKIZUMAB-MRKZ
     Indication: Colitis ulcerative
     Route: 058
  2. OMVOH [Suspect]
     Active Substance: MIRIKIZUMAB-MRKZ
     Indication: Colitis ulcerative
     Route: 058
  3. OMVOH [Suspect]
     Active Substance: MIRIKIZUMAB-MRKZ
     Indication: Colitis ulcerative
     Route: 058
  4. OMVOH [Suspect]
     Active Substance: MIRIKIZUMAB-MRKZ
     Route: 058
  5. OMVOH [Suspect]
     Active Substance: MIRIKIZUMAB-MRKZ
     Route: 058
  6. OMVOH [Suspect]
     Active Substance: MIRIKIZUMAB-MRKZ
     Route: 058

REACTIONS (3)
  - Injection site pain [Recovered/Resolved]
  - Incorrect dose administered [Unknown]
  - Product dose omission issue [Unknown]

NARRATIVE: CASE EVENT DATE: 20250801
